FAERS Safety Report 7911753-X (Version None)
Quarter: 2011Q4

REPORT INFORMATION
  Report Type: 
  Country: None (occurrence: None)
  Receive Date: 20111114
  Receipt Date: 20111114
  Transmission Date: 20120403
  Serious: Yes (Other)
  Sender: FDA-Public Use
  Company Number: None

PATIENT
  Age: 57 Year
  Sex: Female
  Weight: 48.534 kg

DRUGS (2)
  1. AMOXICILLIN AND CLAVULANATE POTASSIUM [Concomitant]
  2. AMOXICILLIN AND CLAVULANATE POTASSIUM [Suspect]
     Indication: DIVERTICULITIS
     Dosage: 1 TABLET
     Route: 048
     Dates: start: 20111028, end: 20111106

REACTIONS (7)
  - RASH [None]
  - EXPOSURE TO TOXIC AGENT [None]
  - PAIN IN EXTREMITY [None]
  - HEADACHE [None]
  - HYPERSENSITIVITY [None]
  - BLISTER [None]
  - ABDOMINAL PAIN [None]
